FAERS Safety Report 19737221 (Version 1)
Quarter: 2021Q3

REPORT INFORMATION
  Report Type: Spontaneous
  Country: RU (occurrence: RU)
  Receive Date: 20210824
  Receipt Date: 20210824
  Transmission Date: 20211014
  Serious: Yes (Death, Life-Threatening, Other)
  Sender: FDA-Public Use
  Company Number: RU-AMGEN-RUSSP2021126715

PATIENT

DRUGS (3)
  1. CARFILZOMIB [Suspect]
     Active Substance: CARFILZOMIB
     Indication: PLASMA CELL MYELOMA
     Dosage: UNK
     Route: 065
  2. LENALIDOMIDE [Suspect]
     Active Substance: LENALIDOMIDE
     Indication: PLASMA CELL MYELOMA
     Dosage: UNK
     Route: 065
  3. DEXAMETHASONE. [Suspect]
     Active Substance: DEXAMETHASONE
     Indication: PLASMA CELL MYELOMA
     Dosage: UNK
     Route: 065

REACTIONS (15)
  - Pneumonia [Fatal]
  - Acute kidney injury [Unknown]
  - Therapy partial responder [Unknown]
  - Hypertension [Unknown]
  - Pulmonary embolism [Fatal]
  - Haematotoxicity [Unknown]
  - Death [Fatal]
  - Plasma cell myeloma [Fatal]
  - Neutropenia [Unknown]
  - Thrombocytopenia [Unknown]
  - Sinus node dysfunction [Unknown]
  - Thrombosis [Unknown]
  - Dyspnoea [Unknown]
  - Arrhythmia [Unknown]
  - Chronic kidney disease [Unknown]
